FAERS Safety Report 12837190 (Version 2)
Quarter: 2016Q4

REPORT INFORMATION
  Report Type: Spontaneous
  Country: GB (occurrence: GB)
  Receive Date: 20161011
  Receipt Date: 20161202
  Transmission Date: 20170207
  Serious: Yes (Other)
  Sender: FDA-Public Use
  Company Number: GB-ALLERGAN-1671778US

PATIENT
  Age: 56 Year
  Sex: Female

DRUGS (1)
  1. TROSPIUM CHLORIDE - BP [Suspect]
     Active Substance: TROSPIUM CHLORIDE
     Indication: HYPERTONIC BLADDER
     Dosage: 40 MG, BID
     Route: 048
     Dates: start: 20160923

REACTIONS (2)
  - Vertigo [Not Recovered/Not Resolved]
  - Dizziness [Unknown]

NARRATIVE: CASE EVENT DATE: 20160925
